FAERS Safety Report 8846426 (Version 3)
Quarter: 2013Q1

REPORT INFORMATION
  Report Type: Spontaneous
  Country: JP (occurrence: JP)
  Receive Date: 20121017
  Receipt Date: 20130314
  Transmission Date: 20140127
  Serious: Yes (Other)
  Sender: FDA-Public Use
  Company Number: JP-PFIZER INC-2012249470

PATIENT
  Age: 7 Decade
  Sex: Male

DRUGS (2)
  1. FLUOROURACIL [Suspect]
     Indication: RECTAL CANCER
     Dosage: CYCLIC (6 COURSES COMPLETED)
  2. CALCIUM LEVOFOLINATE [Suspect]
     Indication: RECTAL CANCER
     Dosage: CYCLIC (6 COURSES COMPLETED)

REACTIONS (1)
  - Urinary tract infection [Unknown]
